FAERS Safety Report 14323156 (Version 2)
Quarter: 2018Q2

REPORT INFORMATION
  Report Type: Report from Study
  Country: None (occurrence: US)
  Receive Date: 20171226
  Receipt Date: 20180525
  Transmission Date: 20180711
  Serious: Yes (Other)
  Sender: FDA-Public Use
  Company Number: US-ABBVIE-17K-163-2203937-00

PATIENT
  Age: 69 Year
  Sex: Female

DRUGS (1)
  1. HUMIRA [Suspect]
     Active Substance: ADALIMUMAB
     Indication: PSORIASIS
     Route: 058
     Dates: end: 2017

REACTIONS (6)
  - Hepatic enzyme increased [Unknown]
  - Hepatic steatosis [Not Recovered/Not Resolved]
  - Breast cancer female [Unknown]
  - Sciatica [Recovering/Resolving]
  - Urinary tract infection [Unknown]
  - Thyroid disorder [Unknown]

NARRATIVE: CASE EVENT DATE: 2017
